FAERS Safety Report 8460183-3 (Version None)
Quarter: 2012Q2

REPORT INFORMATION
  Report Type: 
  Country: None (occurrence: None)
  Receive Date: 20120323
  Receipt Date: 20110912
  Transmission Date: 20120825
  Serious: Yes (Hospitalization)
  Sender: FDA-Public Use
  Company Number: 163-21880-11091425

PATIENT
  Age: 88 Year
  Sex: Male
  Weight: 69.4003 kg

DRUGS (3)
  1. REVLIMID [Suspect]
     Indication: MYELODYSPLASTIC SYNDROME
     Dosage: 25 MG, 1 IN 1 D, PO, 15 MG, 1 IN 1 D, PO, 10 MG, DAILY FOR 28 DAYS, PO
     Route: 048
     Dates: start: 20110801, end: 20110908
  2. REVLIMID [Suspect]
     Indication: MYELODYSPLASTIC SYNDROME
     Dosage: 25 MG, 1 IN 1 D, PO, 15 MG, 1 IN 1 D, PO, 10 MG, DAILY FOR 28 DAYS, PO
     Route: 048
     Dates: start: 20090101
  3. REVLIMID [Suspect]
     Indication: MYELODYSPLASTIC SYNDROME
     Dosage: 25 MG, 1 IN 1 D, PO, 15 MG, 1 IN 1 D, PO, 10 MG, DAILY FOR 28 DAYS, PO
     Route: 048
     Dates: start: 20090301, end: 20090101

REACTIONS (2)
  - TRANSIENT ISCHAEMIC ATTACK [None]
  - ATRIAL FIBRILLATION [None]
